FAERS Safety Report 7928387-3 (Version None)
Quarter: 2011Q4

REPORT INFORMATION
  Report Type: 
  Country: None (occurrence: None)
  Receive Date: 20111118
  Receipt Date: 20111109
  Transmission Date: 20120403
  Serious: Yes (Hospitalization)
  Sender: FDA-Public Use
  Company Number: NL-JNJFOC-20111107844

PATIENT
  Age: 42 Year
  Sex: Male

DRUGS (1)
  1. TRAMADOL HYDROCHLORIDE [Suspect]
     Indication: NEURALGIA
     Route: 065

REACTIONS (4)
  - FEELING ABNORMAL [None]
  - ILEUS [None]
  - SOMNOLENCE [None]
  - DRUG INEFFECTIVE [None]
